FAERS Safety Report 9325883 (Version 2)
Quarter: 2013Q4

REPORT INFORMATION
  Report Type: Spontaneous
  Country: GB (occurrence: GB)
  Receive Date: 20130604
  Receipt Date: 20131023
  Transmission Date: 20140711
  Serious: Yes (Other)
  Sender: FDA-Public Use
  Company Number: GB-SANOFI-AVENTIS-2013SA053460

PATIENT
  Age: 67 Year
  Sex: Female
  Weight: 118 kg

DRUGS (4)
  1. DRONEDARONE [Suspect]
     Indication: ATRIAL FIBRILLATION
     Route: 048
     Dates: start: 20130404, end: 20130503
  2. WARFARIN [Concomitant]
     Route: 065
  3. CANDESARTAN [Concomitant]
     Route: 065
  4. FUROSEMIDE [Concomitant]
     Route: 065

REACTIONS (4)
  - Muscular weakness [Recovered/Resolved]
  - Depressed mood [Recovered/Resolved]
  - Dyspnoea [Recovered/Resolved]
  - Fatigue [Recovered/Resolved]
